FAERS Safety Report 24823197 (Version 2)
Quarter: 2025Q3

REPORT INFORMATION
  Report Type: Report from Study
  Country: CA (occurrence: CA)
  Receive Date: 20250109
  Receipt Date: 20250729
  Transmission Date: 20251021
  Serious: Yes (Hospitalization, Other)
  Sender: SANDOZ
  Company Number: CA-SANDOZ-SDZ2025CA000951

PATIENT
  Age: 81 Year
  Sex: Male

DRUGS (1)
  1. ERELZI [Suspect]
     Active Substance: ETANERCEPT-SZZS
     Indication: Rheumatoid arthritis
     Dosage: 50 MG, QW, WEEKLY (PRE-FILLED SYRINGE)
     Route: 058
     Dates: start: 20231020

REACTIONS (6)
  - Hospitalisation [Unknown]
  - Rheumatoid arthritis [Recovering/Resolving]
  - Retinal disorder [Unknown]
  - Angiopathy [Unknown]
  - Impaired quality of life [Unknown]
  - Therapeutic product effect decreased [Unknown]

NARRATIVE: CASE EVENT DATE: 20250725
